FAERS Safety Report 21290116 (Version 1)
Quarter: 2022Q3

REPORT INFORMATION
  Report Type: Spontaneous
  Country: US (occurrence: None)
  Receive Date: 20220902
  Receipt Date: 20220902
  Transmission Date: 20221027
  Serious: Yes (Hospitalization)
  Sender: FDA-Public Use
  Company Number: None

PATIENT
  Age: 52 Year
  Sex: Female
  Weight: 96.75 kg

DRUGS (1)
  1. INGREZZA [Suspect]
     Active Substance: VALBENAZINE
     Indication: Tardive dyskinesia
     Route: 048
     Dates: start: 20220805, end: 20220830

REACTIONS (7)
  - Tremor [None]
  - Tongue biting [None]
  - Drooling [None]
  - Myalgia [None]
  - Angioedema [None]
  - Tardive dyskinesia [None]
  - Parkinsonism [None]

NARRATIVE: CASE EVENT DATE: 20220830
